FAERS Safety Report 8950391 (Version 2)
Quarter: 2013Q1

REPORT INFORMATION
  Report Type: Spontaneous
  Country: US (occurrence: US)
  Receive Date: 20121207
  Receipt Date: 20130202
  Transmission Date: 20140127
  Serious: Yes (Hospitalization)
  Sender: FDA-Public Use
  Company Number: US-B.I. PHARMACEUTICALS,INC./RIDGEFIELD-2012-BI-01963BP

PATIENT
  Sex: Male
  Weight: 91 kg

DRUGS (9)
  1. SPIRIVA [Suspect]
     Indication: CHRONIC OBSTRUCTIVE PULMONARY DISEASE
     Dosage: 18 MCG
     Route: 055
     Dates: start: 2009
  2. LASIX [Concomitant]
     Dosage: 40 MG
     Route: 048
  3. SIMVASTATIN [Concomitant]
     Indication: BLOOD CHOLESTEROL INCREASED
     Dosage: 20 MG
     Route: 048
  4. WARFARIN [Concomitant]
     Dosage: 3 MG
     Route: 048
  5. BACTRIM [Concomitant]
     Route: 048
  6. TAMSULOSIN [Concomitant]
     Indication: PROSTATOMEGALY
     Dosage: 0.4 MG
     Route: 048
  7. COREG [Concomitant]
     Dosage: 6.25 MG
     Route: 048
  8. LISINOPRIL [Concomitant]
     Dosage: 5 MG
     Route: 048
  9. POTASSIUM [Concomitant]
     Dosage: STRENGTH: 10 MEQ; DAILY DOSE: 20 MEQ
     Route: 048

REACTIONS (5)
  - Heart valve incompetence [Not Recovered/Not Resolved]
  - Tooth infection [Recovered/Resolved]
  - Skin infection [Not Recovered/Not Resolved]
  - Weight increased [Not Recovered/Not Resolved]
  - Activities of daily living impaired [Not Recovered/Not Resolved]
